FAERS Safety Report 17370580 (Version 1)
Quarter: 2020Q1

REPORT INFORMATION
  Report Type: Report from Study
  Country: US (occurrence: US)
  Receive Date: 20200205
  Receipt Date: 20200205
  Transmission Date: 20200409
  Serious: Yes (Death, Hospitalization)
  Sender: FDA-Public Use
  Company Number: US-ACTELION-A-US2020-200648

PATIENT
  Age: 84 Year
  Sex: Male

DRUGS (2)
  1. OPSUMIT [Suspect]
     Active Substance: MACITENTAN
     Indication: PULMONARY ARTERIAL HYPERTENSION
     Dosage: 10 MG, QD
     Route: 048
     Dates: start: 20180731, end: 20200112
  2. UPTRAVI [Suspect]
     Active Substance: SELEXIPAG
     Indication: PULMONARY ARTERIAL HYPERTENSION
     Dosage: UNK
     Route: 048
     Dates: start: 20191218, end: 20200112

REACTIONS (10)
  - Rheumatoid arthritis [Unknown]
  - Dyspnoea [Recovered/Resolved with Sequelae]
  - Pneumonia aspiration [Fatal]
  - Arthralgia [Unknown]
  - Anaemia [Unknown]
  - Pulmonary hypertension [Recovered/Resolved with Sequelae]
  - Dysphagia [Unknown]
  - General physical health deterioration [Fatal]
  - Disease complication [Fatal]
  - Malaise [Unknown]

NARRATIVE: CASE EVENT DATE: 20200112
